FAERS Safety Report 14588004 (Version 1)
Quarter: 2018Q1

REPORT INFORMATION
  Report Type: Report from Study
  Country: BR (occurrence: BR)
  Receive Date: 20180301
  Receipt Date: 20180301
  Transmission Date: 20180509
  Serious: Yes (Hospitalization, Other)
  Sender: FDA-Public Use
  Company Number: BR-BAYER-2018-035570

PATIENT
  Age: 54 Year
  Sex: Male

DRUGS (3)
  1. BETAFERON [Suspect]
     Active Substance: INTERFERON BETA-1B
     Indication: MULTIPLE SCLEROSIS
     Dosage: DOSE TITRATION
     Dates: start: 20160312
  2. BETAFERON [Suspect]
     Active Substance: INTERFERON BETA-1B
     Indication: MULTIPLE SCLEROSIS
     Dosage: 0.5ML ON TUESDAY AND THURSDAY, AND 0.75ML ON SATURDAY
  3. DETRUSITOL [Concomitant]
     Active Substance: TOLTERODINE TARTRATE
     Indication: HYPERTONIC BLADDER
     Dates: start: 2015, end: 2016

REACTIONS (11)
  - Gait disturbance [Not Recovered/Not Resolved]
  - Hypertonic bladder [Recovered/Resolved]
  - Headache [Recovered/Resolved]
  - Product use issue [Not Recovered/Not Resolved]
  - Product prescribing issue [Not Recovered/Not Resolved]
  - Vertigo [Recovered/Resolved with Sequelae]
  - Multiple sclerosis [Not Recovered/Not Resolved]
  - Asthenia [Not Recovered/Not Resolved]
  - Multiple sclerosis relapse [Recovered/Resolved with Sequelae]
  - Gait disturbance [Recovered/Resolved with Sequelae]
  - Pollakiuria [Recovered/Resolved]

NARRATIVE: CASE EVENT DATE: 201604
